FAERS Safety Report 24308586 (Version 2)
Quarter: 2024Q3

REPORT INFORMATION
  Report Type: Report from Study
  Country: US (occurrence: US)
  Receive Date: 20240911
  Receipt Date: 20240917
  Transmission Date: 20241017
  Serious: Yes (Hospitalization, Other)
  Sender: BAYER
  Company Number: US-BAYER-2024A130030

PATIENT
  Age: 73 Year
  Sex: Male
  Weight: 72.562 kg

DRUGS (6)
  1. ADEMPAS [Suspect]
     Active Substance: RIOCIGUAT
     Indication: Pulmonary arterial hypertension
     Dosage: UNK
     Dates: start: 20240502
  2. ADEMPAS [Suspect]
     Active Substance: RIOCIGUAT
     Indication: Pulmonary arterial hypertension
     Dosage: 2 MG, TID
     Route: 048
  3. FUROSEMIDE [Concomitant]
     Active Substance: FUROSEMIDE
  4. XARELTO [Concomitant]
     Active Substance: RIVAROXABAN
  5. POTASSIUM CHLORIDE [Concomitant]
     Active Substance: POTASSIUM CHLORIDE
  6. TORSEMIDE [Concomitant]
     Active Substance: TORSEMIDE

REACTIONS (5)
  - Cardiac disorder [None]
  - Cardiac failure [None]
  - Hypervolaemia [None]
  - Lung disorder [None]
  - Product dose omission issue [None]

NARRATIVE: CASE EVENT DATE: 20240906
